FAERS Safety Report 6086370-X (Version None)
Quarter: 2009Q1

REPORT INFORMATION
  Report Type: 
  Country: None (occurrence: None)
  Receive Date: 20090220
  Receipt Date: 20090209
  Transmission Date: 20090719
  Serious: Yes (Hospitalization, Other)
  Sender: FDA-Public Use
  Company Number: US-WATSON-2009-01061

PATIENT
  Age: 51 Year
  Sex: Female

DRUGS (6)
  1. FENTANYL-75 [Suspect]
     Indication: BACK PAIN
     Dosage: APPLY 1 PATCH EVERY 2 DAYS
     Route: 062
     Dates: start: 20081001, end: 20081001
  2. FENTANYL-75 [Suspect]
     Indication: SPINAL COLUMN STENOSIS
     Dosage: APPLY 1 PATCH EVERY 2 DAYS
     Route: 062
     Dates: start: 20081001, end: 20081001
  3. FENTANYL-75 [Suspect]
     Indication: INTERVERTEBRAL DISC DEGENERATION
     Dosage: UNK
     Route: 062
     Dates: start: 20080701, end: 20081001
  4. OXYCODONE [Concomitant]
     Indication: DRUG USE FOR UNKNOWN INDICATION
     Dosage: 3 TABLETS, SINGLE DOSE
     Route: 048
     Dates: start: 20081001
  5. BACLOFEN [Concomitant]
     Indication: DRUG USE FOR UNKNOWN INDICATION
     Dosage: 2 TABLETS, SINGLE DOSE
     Route: 048
     Dates: start: 20081001
  6. XANAX [Concomitant]
     Indication: DRUG USE FOR UNKNOWN INDICATION
     Dosage: 1/2 TABLET, SINGLE DOSE
     Route: 048
     Dates: start: 20081001

REACTIONS (11)
  - BLOOD SODIUM DECREASED [None]
  - CEREBROVASCULAR ACCIDENT [None]
  - DRUG INEFFECTIVE [None]
  - DYSPNOEA [None]
  - FACIAL PAIN [None]
  - HYPOAESTHESIA [None]
  - HYPOAESTHESIA FACIAL [None]
  - PAIN IN EXTREMITY [None]
  - PARAESTHESIA [None]
  - PRODUCT QUALITY ISSUE [None]
  - STAPHYLOCOCCAL INFECTION [None]
